FAERS Safety Report 8884381 (Version 3)
Quarter: 2013Q1

REPORT INFORMATION
  Report Type: Spontaneous
  Country: US (occurrence: US)
  Receive Date: 20121102
  Receipt Date: 20130103
  Transmission Date: 20140127
  Serious: No
  Sender: FDA-Public Use
  Company Number: US-ASTRAZENECA-2012SE71637

PATIENT
  Age: 52 Year
  Sex: Female

DRUGS (1)
  1. NEXIUM [Suspect]
     Route: 048

REACTIONS (11)
  - Gastrooesophageal reflux disease [Unknown]
  - Muscle spasms [Unknown]
  - Oesophageal food impaction [Unknown]
  - Chest discomfort [Unknown]
  - Dyspepsia [Unknown]
  - Chest pain [Unknown]
  - Constipation [Unknown]
  - Insomnia [Unknown]
  - Malaise [Unknown]
  - Drug dose omission [Unknown]
  - Intentional drug misuse [Unknown]
